FAERS Safety Report 7573160-1 (Version None)
Quarter: 2011Q2

REPORT INFORMATION
  Report Type: 
  Country: None (occurrence: None)
  Receive Date: 20110627
  Receipt Date: 20110624
  Transmission Date: 20111010
  Serious: Yes (Other)
  Sender: FDA-Public Use
  Company Number: GR-BRISTOL-MYERS SQUIBB COMPANY-15807936

PATIENT
  Age: 70 Year
  Sex: Female

DRUGS (7)
  1. PERINDOPRIL ARGININE + AMLODIPINE BESILATE [Concomitant]
     Indication: HYPERTENSION
     Dosage: 1DF=COVERAM TAB (10+10) MG/TAB
  2. SOLOSA [Concomitant]
     Indication: TYPE 2 DIABETES MELLITUS
     Dosage: TABS
  3. GLICLAZIDE [Concomitant]
     Indication: TYPE 2 DIABETES MELLITUS
  4. NEBIVOLOL HCL [Concomitant]
     Dosage: 1DF=1 TABLET LOBINON PLUS FC TAB (5MG+25MG)/TAB,
  5. XANAX [Concomitant]
     Indication: ANXIETY
     Dosage: TABS
  6. EZETIMIBE [Concomitant]
     Indication: BLOOD CHOLESTEROL
     Dosage: 1DF=INEGY 10/20 TABS
  7. ONGLYZA [Suspect]
     Indication: TYPE 2 DIABETES MELLITUS
     Dosage: DURATION 7-8MONTHS,1 TAB
     Route: 048
     Dates: start: 20101101

REACTIONS (2)
  - FACE OEDEMA [None]
  - ALBUMINURIA [None]
